FAERS Safety Report 16984813 (Version 2)
Quarter: 2019Q4

REPORT INFORMATION
  Report Type: Report from Study
  Country: US (occurrence: US)
  Receive Date: 20191101
  Receipt Date: 20191211
  Transmission Date: 20200122
  Serious: No
  Sender: FDA-Public Use
  Company Number: US-SA-2019SA300451

PATIENT
  Age: 50 Year
  Sex: Male

DRUGS (4)
  1. LISINOPRIL. [Concomitant]
     Active Substance: LISINOPRIL
  2. XANAX [Concomitant]
     Active Substance: ALPRAZOLAM
  3. COPAXONE [Concomitant]
     Active Substance: GLATIRAMER ACETATE
  4. TERIFLUNOMIDE. [Suspect]
     Active Substance: TERIFLUNOMIDE
     Indication: MULTIPLE SCLEROSIS
     Dosage: 14 MG, QD
     Route: 048
     Dates: start: 20191004

REACTIONS (6)
  - Unevaluable event [Unknown]
  - Disturbance in attention [Unknown]
  - Cough [Unknown]
  - Hypoaesthesia [Unknown]
  - Fatigue [Unknown]
  - Constipation [Unknown]
